FAERS Safety Report 7731927-0 (Version None)
Quarter: 2011Q3

REPORT INFORMATION
  Report Type: 
  Country: None (occurrence: None)
  Receive Date: 20110906
  Receipt Date: 20110714
  Transmission Date: 20111222
  Serious: No
  Sender: FDA-Public Use
  Company Number: US-AMGEN-USASP2011029946

PATIENT
  Age: 69 Year
  Sex: Female
  Weight: 63.039 kg

DRUGS (18)
  1. PLATO [Concomitant]
  2. TOPROL-XL [Concomitant]
  3. PREMARIN [Concomitant]
     Dosage: UNK
  4. CITRACAL                           /00471001/ [Concomitant]
     Dosage: UNK
  5. VITAMIN D [Concomitant]
     Dosage: UNK
  6. HUMALOG [Concomitant]
  7. PLAVIX [Concomitant]
  8. ASACOL [Concomitant]
  9. PAXIL [Concomitant]
  10. LEVEMIR [Concomitant]
  11. BIOTIN [Concomitant]
     Dosage: UNK
  12. PREDNISONE [Concomitant]
  13. ASPIRIN [Concomitant]
     Dosage: UNK
  14. DETROL LA [Concomitant]
  15. PROLIA [Suspect]
     Indication: OSTEOPOROSIS POSTMENOPAUSAL
     Dosage: 60 MG, Q6MO
     Dates: start: 20110609, end: 20110610
  16. FOLBIC [Concomitant]
     Dosage: UNK
  17. LIPITOR [Concomitant]
  18. SYNTHROID [Concomitant]
     Dosage: 1 A?G, UNK

REACTIONS (3)
  - PAIN [None]
  - MYALGIA [None]
  - HEADACHE [None]
